FAERS Safety Report 4587750-1 (Version None)
Quarter: 2005Q1

REPORT INFORMATION
  Report Type: 
  Country: None (occurrence: None)
  Receive Date: 20050125
  Receipt Date: 20041005
  Transmission Date: 20050727
  Serious: No
  Sender: FDA-Public Use
  Company Number: USA030538260

PATIENT
  Age: 77 Year
  Sex: Female
  Weight: 48 kg

DRUGS (3)
  1. FORTEO [Suspect]
     Indication: OSTEOPOROSIS
     Dosage: 20 UG DAY
     Dates: start: 20030522
  2. ACTONEL [Concomitant]
  3. ATIVAN [Concomitant]

REACTIONS (6)
  - FEELING HOT [None]
  - HEART RATE INCREASED [None]
  - HYPOACUSIS [None]
  - MEMORY IMPAIRMENT [None]
  - PARAESTHESIA [None]
  - TREMOR [None]
